FAERS Safety Report 6365642-5 (Version None)
Quarter: 2009Q3

REPORT INFORMATION
  Report Type: 
  Country: None (occurrence: None)
  Receive Date: 20090919
  Receipt Date: 20090824
  Transmission Date: 20100115
  Serious: No
  Sender: FDA-Public Use
  Company Number: US-ABBOTT-09P-163-0593040-00

PATIENT
  Sex: Female

DRUGS (6)
  1. HUMIRA [Suspect]
     Indication: RHEUMATOID ARTHRITIS
     Route: 058
     Dates: start: 20090401
  2. METHOTREXATE [Concomitant]
     Indication: RHEUMATOID ARTHRITIS
     Dosage: 2.5MG
     Route: 048
  3. SOMA [Concomitant]
     Indication: PAIN
     Route: 048
  4. IBUPROFEN [Concomitant]
     Indication: PAIN
     Route: 048
  5. XANAX [Concomitant]
     Indication: ANXIETY
     Route: 048
  6. FOLIC ACID [Concomitant]
     Indication: MEDICAL DIET
     Route: 048

REACTIONS (1)
  - INJECTION SITE REACTION [None]
